FAERS Safety Report 4289523-6 (Version None)
Quarter: 2004Q1

REPORT INFORMATION
  Report Type: 
  Country: None (occurrence: None)
  Receive Date: 20040126
  Receipt Date: 20030911
  Transmission Date: 20041129
  Serious: No
  Sender: FDA-Public Use
  Company Number: USA030435739

PATIENT
  Age: 65 Year
  Sex: Female
  Weight: 42 kg

DRUGS (4)
  1. FORTEO [Suspect]
     Indication: OSTEOPOROSIS
     Dates: start: 20030304
  2. COZAAR [Concomitant]
  3. DIOVAN [Concomitant]
  4. PREMARIN [Concomitant]

REACTIONS (3)
  - HYPERTENSION [None]
  - PAIN IN EXTREMITY [None]
  - WEIGHT INCREASED [None]
